FAERS Safety Report 23386507 (Version 1)
Quarter: 2024Q1

REPORT INFORMATION
  Report Type: Spontaneous
  Country: US (occurrence: US)
  Receive Date: 20240110
  Receipt Date: 20240110
  Transmission Date: 20240410
  Serious: No
  Sender: FDA-Public Use
  Company Number: US-JNJFOC-20240116781

PATIENT
  Age: 66 Year
  Sex: Male
  Weight: 55.3 kg

DRUGS (12)
  1. OPSUMIT [Suspect]
     Active Substance: MACITENTAN
     Indication: Product used for unknown indication
     Route: 058
  2. REMODULIN [Suspect]
     Active Substance: TREPROSTINIL
     Indication: Pulmonary hypertension
     Route: 065
  3. REMODULIN [Suspect]
     Active Substance: TREPROSTINIL
     Route: 058
     Dates: start: 20230119
  4. FLUTICASONE PROPIONATE [Concomitant]
     Active Substance: FLUTICASONE PROPIONATE
  5. OMEPRAZOLE [Concomitant]
     Active Substance: OMEPRAZOLE
  6. IBUPROFEN [Concomitant]
     Active Substance: IBUPROFEN
  7. XOLAIR [Concomitant]
     Active Substance: OMALIZUMAB
  8. SILDENAFIL [Concomitant]
     Active Substance: SILDENAFIL
  9. LIDOCAINE [Concomitant]
     Active Substance: LIDOCAINE
  10. SPIRONOLACTONE [Concomitant]
     Active Substance: SPIRONOLACTONE
  11. OXYGEN [Concomitant]
     Active Substance: OXYGEN
  12. TRIAMCINOLONE ACETONIDE [Concomitant]
     Active Substance: TRIAMCINOLONE ACETONIDE

REACTIONS (2)
  - Blood pressure decreased [Unknown]
  - Therapy interrupted [Unknown]
